FAERS Safety Report 12137162 (Version 1)
Quarter: 2016Q1

REPORT INFORMATION
  Report Type: Spontaneous
  Country: US (occurrence: US)
  Receive Date: 20160302
  Receipt Date: 20160302
  Transmission Date: 20160526
  Serious: No
  Sender: FDA-Public Use
  Company Number: US-PFIZER INC-2016073438

PATIENT

DRUGS (2)
  1. VIIBRYD [Suspect]
     Active Substance: VILAZODONE HYDROCHLORIDE
     Indication: DEPRESSION
     Dosage: 40 MG, UNK
     Dates: start: 1998, end: 2005
  2. GEODON [Suspect]
     Active Substance: ZIPRASIDONE HYDROCHLORIDE\ZIPRASIDONE MESYLATE
     Indication: DEPRESSION
     Dosage: 60 MG, UNK
     Dates: start: 1998, end: 2005

REACTIONS (2)
  - Product use issue [Unknown]
  - Drug ineffective [Unknown]

NARRATIVE: CASE EVENT DATE: 1998
